FAERS Safety Report 9775915 (Version 1)
Quarter: 2013Q4

REPORT INFORMATION
  Report Type: Spontaneous
  Country: DE (occurrence: DE)
  Receive Date: 20131220
  Receipt Date: 20131220
  Transmission Date: 20140711
  Serious: Yes (Death)
  Sender: FDA-Public Use
  Company Number: DE-GLAXOSMITHKLINE-D0082304A

PATIENT
  Sex: Female

DRUGS (1)
  1. TAFINLAR [Suspect]
     Route: 048

REACTIONS (1)
  - Death [Fatal]
